FAERS Safety Report 8238402-8 (Version None)
Quarter: 2012Q1

REPORT INFORMATION
  Report Type: 
  Country: None (occurrence: None)
  Receive Date: 20120309
  Receipt Date: 20100510
  Transmission Date: 20120608
  Serious: Yes (Other)
  Sender: FDA-Public Use
  Company Number: PHEH2010US01802

PATIENT
  Age: 42 Year
  Sex: Female

DRUGS (6)
  1. VITAMIN B12 [Concomitant]
  2. EXTAVIA [Suspect]
     Indication: MULTIPLE SCLEROSIS
     Dosage: 0.25 MG, QOD, SUBCUTANEOUS
     Route: 058
     Dates: start: 20100128
  3. IBUPROFEN [Concomitant]
  4. GOODYS POWDERS (ACETYLSALICYLIC AICD, CAFFEINE, PARACETAMOL) [Concomitant]
  5. NEURONTIN [Concomitant]
  6. VITAMIN TAB [Concomitant]

REACTIONS (3)
  - INFLUENZA LIKE ILLNESS [None]
  - DYSPHAGIA [None]
  - MYALGIA [None]
